FAERS Safety Report 25816185 (Version 1)
Quarter: 2025Q3

REPORT INFORMATION
  Report Type: Spontaneous
  Country: CH (occurrence: CH)
  Receive Date: 20250918
  Receipt Date: 20250918
  Transmission Date: 20251021
  Serious: Yes (Death, Life-Threatening, Hospitalization)
  Sender: SANDOZ
  Company Number: CH-MLMSERVICE-20250905-PI630344-00312-3

PATIENT
  Age: 38 Year
  Sex: Male
  Weight: 125 kg

DRUGS (15)
  1. BOLDENONE [Suspect]
     Active Substance: BOLDENONE
     Indication: Product used for unknown indication
     Route: 065
  2. METHANDROSTENOLONE [Suspect]
     Active Substance: METHANDROSTENOLONE
     Indication: Product used for unknown indication
     Route: 065
  3. NANDROLONE DECANOATE [Suspect]
     Active Substance: NANDROLONE DECANOATE
     Indication: Product used for unknown indication
     Route: 065
  4. NANDROLONE PHENPROPIONATE [Suspect]
     Active Substance: NANDROLONE PHENPROPIONATE
     Indication: Product used for unknown indication
     Dosage: 300 MG, QW
     Route: 065
  5. OXANDROLONE [Suspect]
     Active Substance: OXANDROLONE
     Indication: Product used for unknown indication
     Route: 065
  6. SOMATROPIN [Suspect]
     Active Substance: SOMATROPIN
     Indication: Product used for unknown indication
     Dosage: 6 IU, QD
     Route: 065
  7. STANOZOLOL [Suspect]
     Active Substance: STANOZOLOL
     Indication: Product used for unknown indication
     Route: 065
  8. TESTOSTERONE [Suspect]
     Active Substance: TESTOSTERONE
     Indication: Product used for unknown indication
     Route: 048
  9. TESTOSTERONE PROPIONATE [Suspect]
     Active Substance: TESTOSTERONE PROPIONATE
     Indication: Product used for unknown indication
     Dosage: 300 MG, QW
     Route: 065
  10. TRENBOLONE [Suspect]
     Active Substance: TRENBOLONE
     Indication: Product used for unknown indication
     Route: 065
  11. CLOMIPHENE [Concomitant]
     Active Substance: CLOMIPHENE
     Indication: Product used for unknown indication
     Route: 065
  12. EMTRICITABINE [Concomitant]
     Active Substance: EMTRICITABINE
     Indication: HIV infection CDC category A
     Route: 065
  13. INSULIN NOS [Concomitant]
     Active Substance: INSULIN NOS
     Indication: Product used for unknown indication
     Dosage: 6 IU, QD
     Route: 065
  14. RILPIVIRINE [Concomitant]
     Active Substance: RILPIVIRINE
     Indication: HIV infection CDC category A
     Route: 065
  15. TENOFOVIR ALAFENAMIDE [Concomitant]
     Active Substance: TENOFOVIR ALAFENAMIDE
     Indication: HIV infection CDC category A
     Route: 065

REACTIONS (12)
  - Cardiovascular disorder [Fatal]
  - Pulmonary embolism [Fatal]
  - Toxic cardiomyopathy [Recovered/Resolved]
  - Hypertension [Recovered/Resolved]
  - Dyslipidaemia [Recovered/Resolved]
  - Body dysmorphic disorder [Unknown]
  - Sleep disorder [Unknown]
  - Polycythaemia [Recovered/Resolved]
  - Splenomegaly [Recovering/Resolving]
  - Hypothalamic pituitary adrenal axis suppression [Unknown]
  - Albuminuria [Recovered/Resolved]
  - Primary hypogonadism [Unknown]

NARRATIVE: CASE EVENT DATE: 20230801
